FAERS Safety Report 18062961 (Version 1)
Quarter: 2020Q3

REPORT INFORMATION
  Report Type: Spontaneous
  Country: US (occurrence: US)
  Receive Date: 20200723
  Receipt Date: 20200723
  Transmission Date: 20201103
  Serious: No
  Sender: FDA-Public Use
  Company Number: US-IGSA-SR10009718

PATIENT
  Sex: Male
  Weight: 113 kg

DRUGS (2)
  1. PROBIOTICS                         /90114801/ [Concomitant]
     Dosage: UNK
     Route: 048
  2. GAMUNEX?C [Suspect]
     Active Substance: HUMAN IMMUNOGLOBULIN G
     Indication: IMMUNODEFICIENCY COMMON VARIABLE
     Dosage: 60 G, Q.4WK.
     Route: 042

REACTIONS (4)
  - Fatigue [Recovered/Resolved]
  - Musculoskeletal stiffness [Recovered/Resolved]
  - Influenza like illness [Recovered/Resolved]
  - Pain [Recovered/Resolved]
